FAERS Safety Report 10242281 (Version 1)
Quarter: 2014Q2

REPORT INFORMATION
  Report Type: Spontaneous
  Country: HR (occurrence: HR)
  Receive Date: 20140617
  Receipt Date: 20140617
  Transmission Date: 20141212
  Serious: Yes (Other)
  Sender: FDA-Public Use
  Company Number: HR-TEVA-413314ISR

PATIENT
  Age: 56 Year
  Sex: Male

DRUGS (3)
  1. PRILEN (RAMIPRIL) [Suspect]
     Indication: ESSENTIAL HYPERTENSION
     Dosage: 5 MILLIGRAM DAILY;
     Route: 048
     Dates: start: 201302
  2. DIAPREL [Interacting]
     Route: 048
     Dates: start: 2011
  3. NEBILET [Interacting]
     Route: 048
     Dates: start: 2011

REACTIONS (4)
  - Dizziness [Unknown]
  - Vomiting [Unknown]
  - Asthenia [Unknown]
  - Drug interaction [Unknown]
